FAERS Safety Report 11018740 (Version 2)
Quarter: 2015Q2

REPORT INFORMATION
  Report Type: Spontaneous
  Country: US (occurrence: US)
  Receive Date: 20150412
  Receipt Date: 20150524
  Transmission Date: 20150821
  Serious: Yes (Death)
  Sender: FDA-Public Use
  Company Number: US-JNJFOC-20130800965

PATIENT
  Age: 26 Year
  Sex: Female

DRUGS (6)
  1. RADIATION THERAPY NOS [Suspect]
     Active Substance: RADIATION THERAPY
     Indication: ADENOID CYSTIC CARCINOMA
     Dosage: 60 GY
     Route: 065
     Dates: end: 200905
  2. RADIATION THERAPY NOS [Suspect]
     Active Substance: RADIATION THERAPY
     Indication: ADENOID CYSTIC CARCINOMA
     Dosage: TOTAL DOSE OF 61 GY
     Route: 065
  3. DOXORUBICIN [Suspect]
     Active Substance: DOXORUBICIN
     Indication: ADENOID CYSTIC CARCINOMA
     Route: 042
     Dates: start: 200701
  4. DOCETAXEL. [Suspect]
     Active Substance: DOCETAXEL
     Indication: ADENOID CYSTIC CARCINOMA
     Dosage: 4 CYCLES
     Route: 065
     Dates: end: 200710
  5. CISPLATIN. [Suspect]
     Active Substance: CISPLATIN
     Indication: ADENOID CYSTIC CARCINOMA
     Route: 013
     Dates: start: 200701
  6. CISPLATIN. [Suspect]
     Active Substance: CISPLATIN
     Indication: ADENOID CYSTIC CARCINOMA
     Dosage: 4 CYCLES
     Route: 013
     Dates: end: 200710

REACTIONS (2)
  - Metastasis [Fatal]
  - Product use issue [Unknown]
